FAERS Safety Report 17914635 (Version 2)
Quarter: 2020Q2

REPORT INFORMATION
  Report Type: Spontaneous
  Country: IT (occurrence: IT)
  Receive Date: 20200618
  Receipt Date: 20200630
  Transmission Date: 20200714
  Serious: Yes (Hospitalization)
  Sender: FDA-Public Use
  Company Number: NVSC2020IT169136

PATIENT
  Age: 48 Year
  Sex: Female

DRUGS (2)
  1. VENLAFAXINE [Suspect]
     Active Substance: VENLAFAXINE HYDROCHLORIDE
     Indication: DRUG ABUSE
     Dosage: 600 MG (TOTAL)
     Route: 048
     Dates: start: 20200306, end: 20200306
  2. QUETIAPINE FUMARATE. [Suspect]
     Active Substance: QUETIAPINE FUMARATE
     Indication: DRUG ABUSE
     Dosage: 21.6 G (TOTAL)
     Route: 048
     Dates: start: 20200306, end: 20200306

REACTIONS (7)
  - Vitamin K decreased [Recovering/Resolving]
  - Mucosal erosion [Recovering/Resolving]
  - Normocytic anaemia [Recovering/Resolving]
  - Oedema [Recovering/Resolving]
  - Hyperaemia [Recovering/Resolving]
  - Drug abuse [Recovering/Resolving]
  - Vomiting [Recovering/Resolving]

NARRATIVE: CASE EVENT DATE: 20200306
